FAERS Safety Report 18794972 (Version 11)
Quarter: 2022Q1

REPORT INFORMATION
  Report Type: Report from Study
  Country: CH (occurrence: CH)
  Receive Date: 20210127
  Receipt Date: 20220204
  Transmission Date: 20220423
  Serious: Yes (Hospitalization, Other)
  Sender: FDA-Public Use
  Company Number: CH-BOEHRINGERINGELHEIM-2018-BI-012872

PATIENT
  Age: 60 Year
  Sex: Female
  Weight: 88 kg

DRUGS (16)
  1. OFEV [Suspect]
     Active Substance: NINTEDANIB
     Indication: Idiopathic pulmonary fibrosis
     Dosage: 150 MG 1-0-0, 100 MG 0-0-1
     Route: 048
     Dates: start: 20180222
  2. OFEV [Suspect]
     Active Substance: NINTEDANIB
     Route: 048
     Dates: start: 201802
  3. OFEV [Suspect]
     Active Substance: NINTEDANIB
     Route: 048
     Dates: start: 20190214
  4. OFEV [Suspect]
     Active Substance: NINTEDANIB
     Route: 048
     Dates: end: 20211211
  5. CORTISONE [Suspect]
     Active Substance: CORTISONE
     Indication: Cough
  6. PANTOPRAZOLE SODIUM [Concomitant]
     Active Substance: PANTOPRAZOLE SODIUM
     Indication: Product used for unknown indication
  7. Paspertin drops [Concomitant]
     Indication: Product used for unknown indication
     Dosage: FORM- DROPS
  8. MOTILIUM [Concomitant]
     Active Substance: DOMPERIDONE
     Indication: Product used for unknown indication
     Dosage: 2 INTO DAY
  9. PREDNISOLONE [Concomitant]
     Active Substance: PREDNISOLONE
     Indication: Product used for unknown indication
  10. PREDNISOLONE [Concomitant]
     Active Substance: PREDNISOLONE
     Dosage: 7.5 MG 1X/D
     Route: 065
  11. PREDNISOLONE [Concomitant]
     Active Substance: PREDNISOLONE
  12. ROVOTRIL [Concomitant]
     Indication: Product used for unknown indication
     Dosage: 1 IN EVENING
  13. CODEINE [Concomitant]
     Active Substance: CODEINE
     Indication: Product used for unknown indication
  14. ATORVASTATIN [Concomitant]
     Active Substance: ATORVASTATIN
     Indication: Product used for unknown indication
  15. EZETIMIBE [Concomitant]
     Active Substance: EZETIMIBE
     Indication: Product used for unknown indication
  16. IBUPROFEN [Concomitant]
     Active Substance: IBUPROFEN
     Indication: Product used for unknown indication
     Dosage: 600

REACTIONS (50)
  - Cough [Not Recovered/Not Resolved]
  - Chest discomfort [Not Recovered/Not Resolved]
  - Epistaxis [Recovered/Resolved]
  - Burning sensation [Recovered/Resolved]
  - Idiopathic pulmonary fibrosis [Recovered/Resolved]
  - Influenza [Unknown]
  - Idiopathic pulmonary fibrosis [Unknown]
  - Diarrhoea [Recovered/Resolved]
  - Hypercholesterolaemia [Recovered/Resolved]
  - Abdominal pain [Not Recovered/Not Resolved]
  - Nausea [Recovering/Resolving]
  - Dry skin [Recovered/Resolved]
  - Dyspepsia [Not Recovered/Not Resolved]
  - Oropharyngeal pain [Not Recovered/Not Resolved]
  - Vomiting [Recovered/Resolved]
  - Secretion discharge [Recovering/Resolving]
  - Arthralgia [Not Recovered/Not Resolved]
  - Arthralgia [Not Recovered/Not Resolved]
  - Pain in extremity [Not Recovered/Not Resolved]
  - Pain in extremity [Recovered/Resolved]
  - Chest discomfort [Recovered/Resolved]
  - Diarrhoea [Recovered/Resolved]
  - Dyspnoea exertional [Not Recovered/Not Resolved]
  - Vomiting [Not Recovered/Not Resolved]
  - Abdominal pain [Recovering/Resolving]
  - Abdominal pain [Not Recovered/Not Resolved]
  - Vomiting [Recovered/Resolved]
  - Productive cough [Not Recovered/Not Resolved]
  - Night sweats [Not Recovered/Not Resolved]
  - Vomiting [Recovered/Resolved]
  - Nasopharyngitis [Recovered/Resolved]
  - Throat irritation [Recovered/Resolved]
  - Headache [Not Recovered/Not Resolved]
  - Abdominal distension [Recovered/Resolved]
  - Epistaxis [Recovered/Resolved]
  - Fatigue [Not Recovered/Not Resolved]
  - Asthenia [Not Recovered/Not Resolved]
  - Fracture [Recovered/Resolved]
  - Diarrhoea [Not Recovered/Not Resolved]
  - Pain [Not Recovered/Not Resolved]
  - Vomiting [Recovering/Resolving]
  - Alopecia [Not Recovered/Not Resolved]
  - Abdominal pain upper [Not Recovered/Not Resolved]
  - Dry skin [Not Recovered/Not Resolved]
  - Chest pain [Recovered/Resolved]
  - Illness [Unknown]
  - Dry skin [Not Recovered/Not Resolved]
  - Pain [Unknown]
  - Weight increased [Recovered/Resolved]
  - Back pain [Recovering/Resolving]

NARRATIVE: CASE EVENT DATE: 20180223
